FAERS Safety Report 20804167 (Version 3)
Quarter: 2022Q2

REPORT INFORMATION
  Report Type: Spontaneous
  Country: US (occurrence: US)
  Receive Date: 20220509
  Receipt Date: 20220603
  Transmission Date: 20220720
  Serious: Yes (Other)
  Sender: FDA-Public Use
  Company Number: US-EyePoint Pharmaceuticals, Inc.-US-EYP-22-00050

PATIENT
  Age: 72 Year
  Sex: Female

DRUGS (1)
  1. DEXYCU [Suspect]
     Active Substance: DEXAMETHASONE
     Indication: Post procedural inflammation
     Dosage: INTO THE SULCUS OF THE POSTERIOR CHAMBER OF THE LEFT EYE/OS
     Route: 031
     Dates: start: 20220208, end: 20220208

REACTIONS (4)
  - Pupillary deformity [Not Recovered/Not Resolved]
  - Iris adhesions [Recovered/Resolved with Sequelae]
  - Vision blurred [Recovered/Resolved]
  - Product residue present [Recovered/Resolved]

NARRATIVE: CASE EVENT DATE: 20220209
